FAERS Safety Report 8524707-X (Version None)
Quarter: 2012Q3

REPORT INFORMATION
  Report Type: 
  Country: None (occurrence: None)
  Receive Date: 20120720
  Receipt Date: 20120712
  Transmission Date: 20120928
  Serious: Yes (Death, Hospitalization, Other)
  Sender: FDA-Public Use
  Company Number: US-009507513-2012SP006666

PATIENT

DRUGS (1)
  1. NUVARING [Suspect]
     Indication: CONTRACEPTION
     Dosage: UNK
     Route: 067
     Dates: start: 20070101, end: 20070201

REACTIONS (8)
  - ASTHENIA [None]
  - VARICOSE VEIN [None]
  - PULMONARY EMBOLISM [None]
  - ASTHMA [None]
  - DEEP VEIN THROMBOSIS [None]
  - DYSFUNCTIONAL UTERINE BLEEDING [None]
  - ARTHROPOD BITE [None]
  - DYSPNOEA [None]
